FAERS Safety Report 22024136 (Version 2)
Quarter: 2023Q2

REPORT INFORMATION
  Report Type: Spontaneous
  Country: US (occurrence: US)
  Receive Date: 20230223
  Receipt Date: 20230405
  Transmission Date: 20230722
  Serious: No
  Sender: FDA-Public Use
  Company Number: US-GSK-US2023AMR025344

PATIENT
  Sex: Female

DRUGS (1)
  1. ALBUTEROL SULFATE [Suspect]
     Active Substance: ALBUTEROL SULFATE
     Indication: Product used for unknown indication
     Dosage: UNK 18G/200 METERED

REACTIONS (5)
  - Wrong technique in device usage process [Unknown]
  - Wrong technique in product usage process [Unknown]
  - Product storage error [Unknown]
  - Product complaint [Unknown]
  - Drug ineffective [Unknown]
